FAERS Safety Report 9686311 (Version 1)
Quarter: 2013Q4

REPORT INFORMATION
  Report Type: Spontaneous
  Country: US (occurrence: US)
  Receive Date: 20131113
  Receipt Date: 20131113
  Transmission Date: 20140711
  Serious: No
  Sender: FDA-Public Use
  Company Number: US-009507513-1310USA013960

PATIENT
  Age: 75 Year
  Sex: Female

DRUGS (4)
  1. DULERA [Suspect]
     Indication: BRONCHITIS
     Dosage: UNK
     Route: 055
     Dates: start: 201308, end: 20130917
  2. PREDNISONE [Concomitant]
     Indication: BRONCHITIS
     Dosage: 2 COURSES
     Route: 048
     Dates: start: 201308
  3. ALLEGRA [Concomitant]
     Indication: BRONCHITIS
     Dosage: UNK
     Dates: start: 201308
  4. VENTOLIN (ALBUTEROL) [Concomitant]
     Indication: BRONCHITIS
     Dosage: UNK
     Dates: start: 201308

REACTIONS (2)
  - Cough [Recovering/Resolving]
  - Dyspnoea [Recovering/Resolving]
